FAERS Safety Report 4302845-5 (Version None)
Quarter: 2004Q1

REPORT INFORMATION
  Report Type: 
  Country: None (occurrence: None)
  Receive Date: 20040223
  Receipt Date: 20040223
  Transmission Date: 20041129
  Serious: Yes (Other)
  Sender: FDA-Public Use
  Company Number: None

PATIENT
  Sex: Female
  Weight: 61.2356 kg

DRUGS (6)
  1. DIOVAN [Suspect]
     Indication: HYPERTENSION
     Dosage: 80 MG PER DAY ORAL
     Route: 048
     Dates: start: 20040122, end: 20040212
  2. DIOVAN [Suspect]
     Indication: HYPERTENSION
     Dosage: 160MG PER DAY ORAL
     Route: 048
     Dates: start: 20040213, end: 20040219
  3. ATENOLOL [Concomitant]
  4. HYDROCHLOROTHIAZIDE [Concomitant]
  5. KCL TAB [Concomitant]
  6. LORAZEPAM [Concomitant]

REACTIONS (4)
  - COUGH [None]
  - DYSPNOEA [None]
  - INFLUENZA LIKE ILLNESS [None]
  - WHEEZING [None]
